FAERS Safety Report 7508594-4 (Version None)
Quarter: 2011Q2

REPORT INFORMATION
  Report Type: 
  Country: None (occurrence: None)
  Receive Date: 20110527
  Receipt Date: 20101028
  Transmission Date: 20111010
  Serious: No
  Sender: FDA-Public Use
  Company Number: A0890113A

PATIENT
  Age: 48 Year
  Sex: Female

DRUGS (6)
  1. BUMETANIDE [Concomitant]
     Route: 048
  2. HYDROCODONE BITARTRATE AND ACETAMINOPHEN [Concomitant]
     Route: 048
  3. COUMADIN [Concomitant]
     Route: 048
  4. FLOLAN [Suspect]
     Indication: PULMONARY ARTERIAL HYPERTENSION
     Route: 042
     Dates: start: 20090612
  5. LORAZEPAM [Concomitant]
     Route: 048
  6. ZOLPIDEM TARTRATE [Concomitant]
     Route: 048

REACTIONS (2)
  - HYPERSENSITIVITY [None]
  - RASH [None]
